FAERS Safety Report 8481795-7 (Version None)
Quarter: 2012Q3

REPORT INFORMATION
  Report Type: 
  Country: None (occurrence: None)
  Receive Date: 20120702
  Receipt Date: 20120621
  Transmission Date: 20120928
  Serious: Yes (Hospitalization, Other)
  Sender: FDA-Public Use
  Company Number: DE-BAYER-2012-061152

PATIENT
  Age: 32 Year
  Sex: Female
  Weight: 65 kg

DRUGS (2)
  1. MIDAZOLAM [Concomitant]
     Indication: CLAUSTROPHOBIA
     Dosage: 3 MG/ML, UNK
  2. GADAVIST [Suspect]
     Indication: ANGIOGRAM
     Dosage: 15 ML, ONCE
     Dates: start: 20120518, end: 20120518

REACTIONS (6)
  - DYSPNOEA [None]
  - ANGIOEDEMA [None]
  - SWELLING FACE [None]
  - PRURITUS GENERALISED [None]
  - EYELID OEDEMA [None]
  - LOCALISED OEDEMA [None]
